FAERS Safety Report 9698310 (Version 1)
Quarter: 2013Q4

REPORT INFORMATION
  Report Type: Spontaneous
  Country: HR (occurrence: HR)
  Receive Date: 20131120
  Receipt Date: 20131120
  Transmission Date: 20140711
  Serious: Yes (Other)
  Sender: FDA-Public Use
  Company Number: HR-ROXANE LABORATORIES, INC.-2013-RO-01842RO

PATIENT
  Age: 62 Year
  Sex: Male

DRUGS (10)
  1. LITHIUM CARBONATE [Suspect]
     Indication: BIPOLAR DISORDER
  2. QUETIAPINE FUMARATE [Suspect]
     Indication: BIPOLAR DISORDER
  3. BISOPROLOL [Concomitant]
  4. PRIADEL [Concomitant]
  5. METFORMIN [Concomitant]
  6. LOFEPRAMINE [Concomitant]
  7. ATOVASTATIN [Concomitant]
  8. LANSOPRAZOLE [Concomitant]
  9. ASPIRIN [Concomitant]
  10. GLICLAZIDE [Concomitant]

REACTIONS (2)
  - Cognitive disorder [Recovered/Resolved]
  - Parkinson^s disease [Unknown]
